FAERS Safety Report 12334859 (Version 4)
Quarter: 2016Q3

REPORT INFORMATION
  Report Type: Spontaneous
  Country: US (occurrence: US)
  Receive Date: 20160504
  Receipt Date: 20160711
  Transmission Date: 20161109
  Serious: No
  Sender: FDA-Public Use
  Company Number: US-PFIZER INC-2016240347

PATIENT
  Age: 48 Year
  Sex: Female

DRUGS (4)
  1. LYRICA [Suspect]
     Active Substance: PREGABALIN
     Indication: FIBROMYALGIA
     Dosage: 100 MG, 3X/DAY (50MG TWO CAPSULES THREE TIMES A DAY)
     Route: 048
     Dates: start: 20160423
  2. LYRICA [Suspect]
     Active Substance: PREGABALIN
     Dosage: INSTEAD OF TAKING SIX A DAY SHE STARTED TAKING ONE
  3. FAMOTIDINE. [Concomitant]
     Active Substance: FAMOTIDINE
     Dosage: 20 MG, AS NEEDED
  4. DIAZEPAM. [Concomitant]
     Active Substance: DIAZEPAM
     Indication: MUSCLE SPASMS
     Dosage: 10 MG, AS NEEDED

REACTIONS (7)
  - Insomnia [Unknown]
  - Drug ineffective [Unknown]
  - Feeling abnormal [Recovering/Resolving]
  - Intentional product use issue [Recovered/Resolved]
  - Nervousness [Unknown]
  - Asthenia [Unknown]
  - Muscle spasms [Unknown]

NARRATIVE: CASE EVENT DATE: 20160423
